FAERS Safety Report 5079809-X (Version None)
Quarter: 2006Q3

REPORT INFORMATION
  Report Type: 
  Country: None (occurrence: None)
  Receive Date: 20060720
  Receipt Date: 20050523
  Transmission Date: 20061208
  Serious: Yes (Hospitalization, Other)
  Sender: FDA-Public Use
  Company Number: 2005078932

PATIENT
  Age: 61 Year
  Sex: Female
  Weight: 77.1115 kg

DRUGS (6)
  1. CELEBREX [Suspect]
     Indication: ARTHRITIS
     Dosage: (1 IN 1 D), ORAL
     Route: 048
     Dates: end: 20050101
  2. PREDNISONE TAB [Concomitant]
  3. SYNTHROID [Concomitant]
  4. ACTOS [Concomitant]
  5. HUMALOG [Concomitant]
  6. NEURONTIN [Concomitant]

REACTIONS (1)
  - CEREBROVASCULAR ACCIDENT [None]
